FAERS Safety Report 7955428-X (Version None)
Quarter: 2011Q4

REPORT INFORMATION
  Report Type: 
  Country: None (occurrence: None)
  Receive Date: 20111202
  Receipt Date: 20111123
  Transmission Date: 20120403
  Serious: Yes (Death, Hospitalization)
  Sender: FDA-Public Use
  Company Number: GR-ROCHE-1016209

PATIENT
  Age: 79 Year
  Sex: Female

DRUGS (2)
  1. METHOTREXATE [Concomitant]
  2. MABTHERA [Suspect]
     Indication: RHEUMATOID ARTHRITIS
     Dosage: DOSE ADMINISTERED ON DAY 1 AND 15 EVERY 6 MONTHS
     Route: 042
     Dates: start: 20101002

REACTIONS (1)
  - CEREBROVASCULAR ACCIDENT [None]
